FAERS Safety Report 7871818-8 (Version None)
Quarter: 2011Q4

REPORT INFORMATION
  Report Type: 
  Country: None (occurrence: None)
  Receive Date: 20111029
  Receipt Date: 20110308
  Transmission Date: 20120403
  Serious: No
  Sender: FDA-Public Use
  Company Number: US-AMGEN-USASP2011013169

PATIENT
  Age: 48 Year
  Sex: Female
  Weight: 60.3 kg

DRUGS (5)
  1. IBUPROFEN [Concomitant]
     Dosage: 200 MG, UNK
  2. ENBREL [Suspect]
     Indication: PRODUCT USED FOR UNKNOWN INDICATION
     Dosage: 25 MG, 2 TIMES/WK
     Route: 058
  3. VICODIN [Concomitant]
     Dosage: UNK MG, UNK
  4. FLEXERIL [Concomitant]
     Dosage: 5 MG, UNK
  5. CLONAZEPAM [Concomitant]
     Dosage: 0.5 MG, UNK

REACTIONS (1)
  - BRONCHITIS [None]
